FAERS Safety Report 23844239 (Version 1)
Quarter: 2024Q2

REPORT INFORMATION
  Report Type: Spontaneous
  Country: US (occurrence: US)
  Receive Date: 20240510
  Receipt Date: 20240510
  Transmission Date: 20240715
  Serious: No
  Sender: FDA-Public Use
  Company Number: US-002147023-NVSC2023US240927

PATIENT
  Age: 91 Year
  Sex: Female

DRUGS (2)
  1. XIIDRA [Suspect]
     Active Substance: LIFITEGRAST
     Indication: Product used for unknown indication
     Route: 047
     Dates: start: 20231107
  2. PILOCARPINE [Concomitant]
     Active Substance: PILOCARPINE
     Indication: Product used for unknown indication
     Route: 065

REACTIONS (6)
  - Eye irritation [Unknown]
  - Product complaint [Unknown]
  - Product use complaint [Unknown]
  - Product dose omission in error [Unknown]
  - Product quality issue [Unknown]
  - Product delivery mechanism issue [Unknown]
